FAERS Safety Report 8333539-7 (Version None)
Quarter: 2012Q2

REPORT INFORMATION
  Report Type: 
  Country: None (occurrence: None)
  Receive Date: 20120503
  Receipt Date: 20120425
  Transmission Date: 20120825
  Serious: Yes (Disabling)
  Sender: FDA-Public Use
  Company Number: US-JNJFOC-20100306475

PATIENT
  Sex: Female
  Weight: 63.5 kg

DRUGS (1)
  1. LEVAQUIN [Suspect]
     Indication: LYME DISEASE
     Route: 048

REACTIONS (3)
  - GASTROINTESTINAL DISORDER [None]
  - DISABILITY [None]
  - DIARRHOEA [None]
